FAERS Safety Report 11545603 (Version 1)
Quarter: 2015Q3

REPORT INFORMATION
  Report Type: Spontaneous
  Country: US (occurrence: US)
  Receive Date: 20150924
  Receipt Date: 20150924
  Transmission Date: 20151125
  Serious: Yes (Hospitalization)
  Sender: FDA-Public Use
  Company Number: US-PFIZER INC-2015246432

PATIENT
  Age: 11 Year
  Sex: Male

DRUGS (6)
  1. DILANTIN [Suspect]
     Active Substance: PHENYTOIN
     Indication: ATAXIA
  2. DILANTIN [Suspect]
     Active Substance: PHENYTOIN
     Indication: PETIT MAL EPILEPSY
     Dosage: 0.03 GM. (1/2 GR.) Q.I.D.
     Dates: end: 19530828
  3. PHENOBARBITAL. [Concomitant]
     Active Substance: PHENOBARBITAL
     Indication: CONFUSIONAL STATE
  4. PHENOBARBITAL. [Concomitant]
     Active Substance: PHENOBARBITAL
     Indication: ATAXIA
  5. DILANTIN [Suspect]
     Active Substance: PHENYTOIN
     Indication: CONFUSIONAL STATE
  6. PHENOBARBITAL. [Concomitant]
     Active Substance: PHENOBARBITAL
     Indication: PETIT MAL EPILEPSY
     Dosage: 0.015 GM. (1/4 GR.) Q.I.D.
     Dates: end: 19530828

REACTIONS (8)
  - Lymphadenopathy [Recovered/Resolved]
  - Rash pruritic [Recovered/Resolved]
  - Petechiae [Recovered/Resolved]
  - Rash maculo-papular [Recovered/Resolved]
  - Pyrexia [Recovered/Resolved]
  - Eosinophilia [Unknown]
  - Leukopenia [Unknown]
  - Rash erythematous [Recovered/Resolved]

NARRATIVE: CASE EVENT DATE: 195308
